FAERS Safety Report 24816140 (Version 1)
Quarter: 2025Q1

REPORT INFORMATION
  Report Type: Spontaneous
  Country: CN (occurrence: CN)
  Receive Date: 20250107
  Receipt Date: 20250107
  Transmission Date: 20250408
  Serious: Yes (Other)
  Sender: PURDUE
  Company Number: CN-NAPPMUNDI-GBR-2024-0122529

PATIENT
  Age: 46 Year
  Sex: Male

DRUGS (10)
  1. OXYCODONE HYDROCHLORIDE [Suspect]
     Active Substance: OXYCODONE HYDROCHLORIDE
     Indication: Analgesic therapy
     Dosage: 20 MILLIGRAM, Q8H
     Route: 048
     Dates: start: 20231215, end: 20231226
  2. OXYCODONE HYDROCHLORIDE [Suspect]
     Active Substance: OXYCODONE HYDROCHLORIDE
     Dosage: 40 MILLIGRAM, Q12H
     Route: 048
     Dates: start: 20231227, end: 20231231
  3. OXYCODONE HYDROCHLORIDE [Suspect]
     Active Substance: OXYCODONE HYDROCHLORIDE
     Dosage: 30 MILLIGRAM, Q12H
     Route: 048
     Dates: start: 20240101, end: 20240108
  4. TRAMADOL HYDROCHLORIDE [Suspect]
     Active Substance: TRAMADOL HYDROCHLORIDE
     Indication: Analgesic therapy
     Dosage: 200 MILLIGRAM, Q12H
     Route: 048
     Dates: start: 20231215, end: 20231226
  5. PREGABALIN [Suspect]
     Active Substance: PREGABALIN
     Indication: Analgesic therapy
     Dosage: 75 MILLIGRAM, TID
     Route: 048
     Dates: start: 20231215, end: 20231219
  6. PREGABALIN [Suspect]
     Active Substance: PREGABALIN
     Dosage: 150 MILLIGRAM, BID (INCREASED TO 150 MG BID ON DAY 6)
     Route: 048
     Dates: start: 20231220
  7. OXYCODONE AND ACETAMINOPHEN [Suspect]
     Active Substance: ACETAMINOPHEN\OXYCODONE HYDROCHLORIDE
     Indication: Analgesic therapy
     Route: 048
     Dates: start: 20231215
  8. FENTANYL [Suspect]
     Active Substance: FENTANYL
     Indication: Analgesic therapy
     Dosage: 4.2 MILLIGRAM, Q72H
     Route: 062
     Dates: start: 20231221, end: 20231224
  9. PHENOXYBENZAMINE [Suspect]
     Active Substance: PHENOXYBENZAMINE
     Indication: Hypertension
     Dosage: 10 MILLIGRAM, QID
     Route: 065
     Dates: start: 20231215, end: 20231220
  10. PHENOXYBENZAMINE [Suspect]
     Active Substance: PHENOXYBENZAMINE
     Dosage: 20 MILLIGRAM, TID
     Route: 065
     Dates: start: 20231221

REACTIONS (5)
  - Drug-induced liver injury [Recovered/Resolved]
  - Constipation [Unknown]
  - Therapeutic product effect incomplete [Unknown]
  - Inappropriate schedule of product administration [Unknown]
  - Labelled drug-drug interaction issue [Unknown]

NARRATIVE: CASE EVENT DATE: 20231201
